FAERS Safety Report 9156943 (Version 1)
Quarter: 2013Q1

REPORT INFORMATION
  Report Type: Spontaneous
  Country: US (occurrence: None)
  Receive Date: 20130308
  Receipt Date: 20130308
  Transmission Date: 20140127
  Serious: Yes (Other)
  Sender: FDA-Public Use
  Company Number: None

PATIENT
  Age: 55 Year
  Sex: Male
  Weight: 90.72 kg

DRUGS (1)
  1. SENNA LEAF\SENNOSIDES\SENNOSIDES A AND B [Suspect]
     Dosage: 2 PIECES X2NIGHTS, PO
     Route: 048
     Dates: start: 20130226, end: 20130227

REACTIONS (3)
  - Dizziness [None]
  - Gait disturbance [None]
  - Asthenia [None]
